FAERS Safety Report 5926710-2 (Version None)
Quarter: 2008Q4

REPORT INFORMATION
  Report Type: 
  Country: None (occurrence: None)
  Receive Date: 20081017
  Receipt Date: 20081003
  Transmission Date: 20090506
  Serious: Yes (Death)
  Sender: FDA-Public Use
  Company Number: 2008BI020676

PATIENT
  Age: 67 Year
  Sex: Male

DRUGS (6)
  1. TYSABRI [Suspect]
     Indication: MULTIPLE SCLEROSIS
     Dosage: 300 MG; QM; IV
     Route: 042
     Dates: start: 20080804
  2. SPIRICORT [Concomitant]
  3. SORTIS [Concomitant]
  4. BISOPROLOL FUMARATE [Concomitant]
  5. PRADIF [Concomitant]
  6. . [Concomitant]

REACTIONS (2)
  - CARDIAC FAILURE [None]
  - SUDDEN DEATH [None]
